FAERS Safety Report 19149676 (Version 1)
Quarter: 2021Q2

REPORT INFORMATION
  Report Type: Spontaneous
  Country: AU (occurrence: AU)
  Receive Date: 20210417
  Receipt Date: 20210417
  Transmission Date: 20210717
  Serious: No
  Sender: FDA-Public Use
  Company Number: AU-DRREDDYS-USA/AUS/21/0134170

PATIENT
  Age: 36 Year
  Sex: Male

DRUGS (6)
  1. CITALOPRAM [Suspect]
     Active Substance: CITALOPRAM HYDROBROMIDE
     Indication: SCHIZOPHRENIA
  2. CLOZAPINE. [Interacting]
     Active Substance: CLOZAPINE
  3. ESCITALOPRAM [Interacting]
     Active Substance: ESCITALOPRAM OXALATE
     Indication: SCHIZOPHRENIA
  4. CLOZAPINE. [Interacting]
     Active Substance: CLOZAPINE
     Indication: SCHIZOPHRENIA
  5. CLOZAPINE. [Interacting]
     Active Substance: CLOZAPINE
     Dates: start: 2003
  6. ESCITALOPRAM [Interacting]
     Active Substance: ESCITALOPRAM OXALATE

REACTIONS (3)
  - Salivary hypersecretion [Unknown]
  - Drug level increased [Recovering/Resolving]
  - Drug interaction [Recovering/Resolving]
